FAERS Safety Report 10169384 (Version 1)
Quarter: 2014Q2

REPORT INFORMATION
  Report Type: Spontaneous
  Country: FR (occurrence: FR)
  Receive Date: 20140513
  Receipt Date: 20140513
  Transmission Date: 20141212
  Serious: Yes (Hospitalization)
  Sender: FDA-Public Use
  Company Number: FR-MALLINCKRODT-T201402176

PATIENT
  Age: 81 Year
  Sex: Male

DRUGS (21)
  1. OFIRMEV [Suspect]
     Indication: ANALGESIC THERAPY
     Dosage: UNK
     Route: 042
     Dates: start: 20140324
  2. PROFENID [Suspect]
     Indication: ANALGESIC THERAPY
     Dosage: UNK
     Route: 042
     Dates: start: 20140324
  3. ACUPAN [Suspect]
     Indication: ANALGESIC THERAPY
     Dosage: UNK
     Route: 042
     Dates: start: 20140324
  4. CEFUROXIME [Suspect]
     Indication: PROPHYLAXIS
  5. OCUFEN [Suspect]
     Indication: MYDRIASIS
  6. TROPICAMIDE [Suspect]
     Indication: MYDRIASIS
  7. NEOSYNEPHRINE [Suspect]
     Indication: MYDRIASIS
     Dosage: UNK
     Dates: start: 20140324
  8. SUFENTA [Suspect]
     Indication: ANAESTHESIA
     Route: 040
  9. HYPNOVEL [Suspect]
     Indication: ANAESTHESIA
     Route: 042
  10. KETAMINE PANPHARMA [Suspect]
     Indication: ANAESTHESIA
     Route: 042
  11. CARBOCAINE [Suspect]
     Indication: ANAESTHESIA
     Dosage: UNK
     Route: 042
     Dates: start: 20140324
  12. COVERSYL [Suspect]
     Indication: HYPERTENSION
     Dosage: 5 MILLIGRAM 1/1 DAY
     Route: 048
     Dates: end: 20140426
  13. PARALYOC [Suspect]
     Indication: ANALGESIC THERAPY
     Dosage: UNK
     Dates: start: 20140324
  14. PREVISCAN [Concomitant]
  15. DIGOXIN [Concomitant]
  16. FUROSEMIDE [Concomitant]
  17. TAHOR [Concomitant]
  18. XATRAL [Concomitant]
  19. SERETIDE [Concomitant]
  20. ISOPTINE [Concomitant]
  21. ZALDIAR [Concomitant]

REACTIONS (2)
  - Anaphylactoid shock [Recovered/Resolved]
  - Angioedema [Recovered/Resolved]
